FAERS Safety Report 22653776 (Version 1)
Quarter: 2023Q2

REPORT INFORMATION
  Report Type: Spontaneous
  Country: US (occurrence: None)
  Receive Date: 20230628
  Receipt Date: 20230628
  Transmission Date: 20230722
  Serious: No
  Sender: FDA-Public Use
  Company Number: None

PATIENT
  Age: 75 Year
  Sex: Male

DRUGS (1)
  1. DIMETHYL FUMARATE [Suspect]
     Active Substance: DIMETHYL FUMARATE
     Dosage: FREQUENCY : TWICE A DAY;?
     Route: 048

REACTIONS (13)
  - Fall [None]
  - Post procedural complication [None]
  - Sepsis [None]
  - Pulmonary thrombosis [None]
  - Hypotension [None]
  - Clostridium difficile infection [None]
  - Throat irritation [None]
  - Pharyngeal erythema [None]
  - Hypophagia [None]
  - Dysphagia [None]
  - Aphasia [None]
  - Erythema [None]
  - Skin swelling [None]

NARRATIVE: CASE EVENT DATE: 20230628
